FAERS Safety Report 4818950-0 (Version None)
Quarter: 2005Q4

REPORT INFORMATION
  Report Type: 
  Country: None (occurrence: None)
  Receive Date: 20051102
  Receipt Date: 20051102
  Transmission Date: 20060501
  Serious: Yes (Hospitalization)
  Sender: FDA-Public Use
  Company Number: None

PATIENT
  Sex: Male
  Weight: 89.3586 kg

DRUGS (4)
  1. CISPLATIN [Suspect]
     Indication: ADENOCARCINOMA
     Dosage: 40.60 MG  IV
     Route: 042
     Dates: start: 20050725, end: 20050729
  2. CISPLATIN [Suspect]
     Indication: SWEAT GLAND DISORDER
     Dosage: 40.60 MG  IV
     Route: 042
     Dates: start: 20050725, end: 20050729
  3. PACLITAXEL [Suspect]
     Indication: ADENOCARCINOMA
     Dosage: 30.45 MG IV
     Route: 042
     Dates: start: 20050725, end: 20050729
  4. PACLITAXEL [Suspect]
     Indication: SWEAT GLAND DISORDER
     Dosage: 30.45 MG IV
     Route: 042
     Dates: start: 20050725, end: 20050729

REACTIONS (14)
  - ANAEMIA [None]
  - ASPIRATION [None]
  - DIVERTICULITIS [None]
  - DYSPNOEA [None]
  - FLUID OVERLOAD [None]
  - GASTROINTESTINAL HAEMORRHAGE [None]
  - HAEMODIALYSIS [None]
  - HYPERTENSION [None]
  - HYPOTENSION [None]
  - HYPOXIA [None]
  - NEUTROPENIA [None]
  - PNEUMONIA STAPHYLOCOCCAL [None]
  - POST PROCEDURAL COMPLICATION [None]
  - RENAL FAILURE ACUTE [None]
